FAERS Safety Report 4781576-1 (Version None)
Quarter: 2005Q3

REPORT INFORMATION
  Report Type: 
  Country: None (occurrence: None)
  Receive Date: 20050927
  Receipt Date: 20050915
  Transmission Date: 20060218
  Serious: Yes (Life-Threatening, Hospitalization)
  Sender: FDA-Public Use
  Company Number: 2005-132510-NL

PATIENT
  Age: 36 Year
  Sex: Female

DRUGS (2)
  1. FOLLITROPIN BETA (BATCH #: 383169) [Suspect]
     Indication: IN VITRO FERTILISATION
     Dosage: 200 IU; SUBCUTANEOUS
     Route: 058
     Dates: start: 20050903, end: 20050914
  2. LUTEINISING HORMONE (HUMAN) [Suspect]
     Indication: IN VITRO FERTILISATION
     Dosage: DF
     Dates: start: 20050908, end: 20050910

REACTIONS (2)
  - BRAIN STEM ISCHAEMIA [None]
  - THROMBOSIS [None]
